FAERS Safety Report 23539917 (Version 1)
Quarter: 2024Q1

REPORT INFORMATION
  Report Type: Spontaneous
  Country: US (occurrence: None)
  Receive Date: 20240219
  Receipt Date: 20240219
  Transmission Date: 20240409
  Serious: Yes (Other)
  Sender: FDA-Public Use
  Company Number: 2024A041632

PATIENT
  Sex: Female
  Weight: 64 kg

DRUGS (1)
  1. ESOMEPRAZOLE MAGNESIUM [Suspect]
     Active Substance: ESOMEPRAZOLE\ESOMEPRAZOLE MAGNESIUM\ESOMEPRAZOLE MAGNESIUM DIHYDRATE
     Indication: Gastrooesophageal reflux disease
     Dosage: UNK

REACTIONS (7)
  - Retinal haemorrhage [Unknown]
  - Glaucoma [Unknown]
  - Visual impairment [Unknown]
  - Product tampering [Unknown]
  - Dizziness [Unknown]
  - Feeling abnormal [Unknown]
  - Vision blurred [Unknown]
